FAERS Safety Report 4280826-8 (Version None)
Quarter: 2004Q1

REPORT INFORMATION
  Report Type: 
  Country: None (occurrence: None)
  Receive Date: 20040127
  Receipt Date: 20040116
  Transmission Date: 20041129
  Serious: Yes (Hospitalization, Other)
  Sender: FDA-Public Use
  Company Number: USA-2003-0006290

PATIENT
  Age: 35 Year
  Sex: Male
  Weight: 83.9 kg

DRUGS (6)
  1. OXYCONTIN [Suspect]
     Indication: PAIN
     Dosage: MG, SEE TEXT, ORAL; 40 MG, BID,
     Route: 048
     Dates: start: 19990101, end: 20020101
  2. PHENERGAN [Concomitant]
  3. DARVOCET-N TABLET [Concomitant]
  4. TESTOSTERONE [Concomitant]
  5. ULTRAM [Concomitant]
  6. ZOCOR [Concomitant]

REACTIONS (23)
  - ABDOMINAL ADHESIONS [None]
  - ANAL FISSURE [None]
  - ANXIETY [None]
  - ATELECTASIS [None]
  - BRONCHITIS [None]
  - DEPRESSION [None]
  - DIARRHOEA [None]
  - DRUG DEPENDENCE [None]
  - DRUG WITHDRAWAL SYNDROME [None]
  - DYSLIPIDAEMIA [None]
  - HYPERTROPHY BREAST [None]
  - IMPAIRED GASTRIC EMPTYING [None]
  - LIVER FUNCTION TEST ABNORMAL [None]
  - MYOCARDIAL INFARCTION [None]
  - NEUROPATHY PERIPHERAL [None]
  - PAIN [None]
  - PERIARTHRITIS [None]
  - PHARYNGITIS [None]
  - POLYCYTHAEMIA [None]
  - POST PROCEDURAL COMPLICATION [None]
  - RECTAL HAEMORRHAGE [None]
  - SINUSITIS [None]
  - SMALL INTESTINAL OBSTRUCTION [None]
